FAERS Safety Report 4963311-7 (Version None)
Quarter: 2006Q2

REPORT INFORMATION
  Report Type: 
  Country: None (occurrence: None)
  Receive Date: 20060404
  Receipt Date: 20060404
  Transmission Date: 20061013
  Serious: Yes (Hospitalization)
  Sender: FDA-Public Use
  Company Number: None

PATIENT
  Age: 51 Year
  Sex: Male

DRUGS (7)
  1. TRUVADA [Suspect]
     Indication: ACQUIRED IMMUNODEFICIENCY SYNDROME
     Dates: start: 20050929, end: 20060304
  2. BACTRIM [Concomitant]
  3. SUSTIVA [Concomitant]
  4. ASPIRIN [Concomitant]
  5. ZESTORETIC [Concomitant]
  6. OMEGA 3 [Concomitant]
  7. M.V.I. [Concomitant]

REACTIONS (3)
  - BLOOD CREATININE INCREASED [None]
  - DIARRHOEA [None]
  - NAUSEA [None]
